FAERS Safety Report 8165518-7 (Version None)
Quarter: 2012Q1

REPORT INFORMATION
  Report Type: 
  Country: None (occurrence: None)
  Receive Date: 20120223
  Receipt Date: 20120223
  Transmission Date: 20120608
  Serious: Yes (Hospitalization, Other)
  Sender: FDA-Public Use
  Company Number: None

PATIENT
  Age: 63 Year
  Sex: Female
  Weight: 59.8748 kg

DRUGS (2)
  1. OXYCODONE HCL [Suspect]
     Indication: STAPHYLOCOCCAL SEPSIS
     Dosage: 10 MG Q 4-6 H ORAL
     Route: 048
     Dates: start: 20100801, end: 20120101
  2. OXYCODONE HCL [Suspect]
     Indication: HIP ARTHROPLASTY
     Dosage: 10 MG Q 4-6 H ORAL
     Route: 048
     Dates: start: 20100801, end: 20120101

REACTIONS (7)
  - OESOPHAGEAL SPASM [None]
  - VISION BLURRED [None]
  - ABDOMINAL PAIN [None]
  - MALAISE [None]
  - MIGRAINE [None]
  - EYE DISORDER [None]
  - HYPERTENSION [None]
